FAERS Safety Report 19874800 (Version 3)
Quarter: 2022Q1

REPORT INFORMATION
  Report Type: Report from Study
  Country: CA (occurrence: CA)
  Receive Date: 20210923
  Receipt Date: 20220217
  Transmission Date: 20220424
  Serious: Yes (Other)
  Sender: FDA-Public Use
  Company Number: CA-OTSUKA-2021_008665

PATIENT
  Sex: Male

DRUGS (1)
  1. ARIPIPRAZOLE [Suspect]
     Active Substance: ARIPIPRAZOLE
     Indication: Product used for unknown indication
     Dosage: 400 MG IM Q 28 DAYS
     Route: 030
     Dates: start: 20210319

REACTIONS (5)
  - Loss of consciousness [Recovered/Resolved]
  - Impatience [Unknown]
  - Pulmonary mass [Unknown]
  - Abdominal mass [Unknown]
  - Weight decreased [Unknown]
